FAERS Safety Report 22526315 (Version 1)
Quarter: 2023Q2

REPORT INFORMATION
  Report Type: Spontaneous
  Country: GB (occurrence: GB)
  Receive Date: 20230606
  Receipt Date: 20230606
  Transmission Date: 20230721
  Serious: Yes (Other)
  Sender: FDA-Public Use
  Company Number: GB-VERTEX PHARMACEUTICALS-2022-017306

PATIENT
  Sex: Female

DRUGS (5)
  1. ELEXACAFTOR\IVACAFTOR\TEZACAFTOR [Suspect]
     Active Substance: ELEXACAFTOR\IVACAFTOR\TEZACAFTOR
     Indication: Cystic fibrosis
     Dosage: 2 TABS (75 MG IVA/50 MG TEZA/100 MG ELEXA) AM
     Route: 048
     Dates: start: 202009
  2. KALYDECO [Suspect]
     Active Substance: IVACAFTOR
     Indication: Cystic fibrosis
     Dosage: 1 TAB IN PM
     Route: 048
     Dates: start: 202009
  3. COLOMYCIN [Concomitant]
     Dosage: UNK UNK, PRN
     Route: 055
  4. PULMOZYME [Concomitant]
     Active Substance: DORNASE ALFA
     Dosage: UNK, PRN
  5. COLISTIMETHATE SODIUM [Concomitant]
     Active Substance: COLISTIMETHATE SODIUM

REACTIONS (2)
  - Foetal distress syndrome [Unknown]
  - Exposure during pregnancy [Unknown]

NARRATIVE: CASE EVENT DATE: 20220101
